FAERS Safety Report 17276035 (Version 3)
Quarter: 2022Q2

REPORT INFORMATION
  Report Type: Report from Study
  Country: None (occurrence: US)
  Receive Date: 20200116
  Receipt Date: 20220413
  Transmission Date: 20220721
  Serious: No
  Sender: FDA-Public Use
  Company Number: US-AKCEA THERAPEUTICS-2020IS001015

PATIENT
  Age: 67 Year
  Sex: Female

DRUGS (3)
  1. TEGSEDI [Suspect]
     Active Substance: INOTERSEN SODIUM
     Indication: Product used for unknown indication
     Dates: start: 201806
  2. DEVICE [Suspect]
     Active Substance: DEVICE
  3. DIFLUNISAL [Concomitant]
     Active Substance: DIFLUNISAL
     Route: 065
     Dates: start: 201508

REACTIONS (3)
  - Upper limb fracture [Unknown]
  - Platelet count decreased [Unknown]
  - Injection site bruising [Unknown]

NARRATIVE: CASE EVENT DATE: 20181101
